FAERS Safety Report 6871585-0 (Version None)
Quarter: 2010Q3

REPORT INFORMATION
  Report Type: 
  Country: None (occurrence: None)
  Receive Date: 20100723
  Receipt Date: 20100721
  Transmission Date: 20110219
  Serious: Yes (Life-Threatening)
  Sender: FDA-Public Use
  Company Number: PHHY2010IN47820

PATIENT
  Sex: Male

DRUGS (1)
  1. AFINITOR [Suspect]
     Indication: ADRENOCORTICAL CARCINOMA
     Dosage: 10 MG, UNK

REACTIONS (2)
  - DRUG INTOLERANCE [None]
  - VENTRICULAR TACHYCARDIA [None]
